FAERS Safety Report 6260573-3 (Version None)
Quarter: 2009Q2

REPORT INFORMATION
  Report Type: 
  Country: None (occurrence: None)
  Receive Date: 20090626
  Receipt Date: 20090610
  Transmission Date: 20091009
  Serious: No
  Sender: FDA-Public Use
  Company Number: 2009-198491-NL

PATIENT
  Age: 69 Year
  Sex: Male

DRUGS (6)
  1. BCG LIVE [Suspect]
     Indication: BLADDER TRANSITIONAL CELL CARCINOMA
     Dosage: INTRAVESICAL; 1 YEAR 21 WEEKS 3 DAYS
     Route: 024
     Dates: start: 20071109, end: 20090406
  2. ACETYSALICYLIC ACID [Concomitant]
  3. ATENOLOL [Concomitant]
  4. IRBESARTAN [Concomitant]
  5. SERTRALINE [Concomitant]
  6. SIMVASTATIN [Concomitant]

REACTIONS (1)
  - UVEITIS [None]
